FAERS Safety Report 6509771-1 (Version None)
Quarter: 2009Q4

REPORT INFORMATION
  Report Type: 
  Country: None (occurrence: None)
  Receive Date: 20091222
  Receipt Date: 20091211
  Transmission Date: 20100525
  Serious: Yes (Death)
  Sender: FDA-Public Use
  Company Number: IT-MILLENNIUM PHARMACEUTICALS, INC.-2009-04818

PATIENT

DRUGS (2)
  1. VELCADE [Suspect]
     Indication: MULTIPLE MYELOMA
     Dosage: 2 MG, UNK
     Route: 042
     Dates: start: 20091013, end: 20091106
  2. DEXAMETHASONE TAB [Concomitant]
     Dosage: 40 MG, UNK
     Route: 048
     Dates: start: 20091013, end: 20091106

REACTIONS (1)
  - DEATH [None]
